FAERS Safety Report 8978202 (Version 1)
Quarter: 2012Q4

REPORT INFORMATION
  Report Type: 
  Country: MX (occurrence: MX)
  Receive Date: 20121221
  Receipt Date: 20121221
  Transmission Date: 20130627
  Serious: Yes (Other)
  Sender: FDA-Public Use
  Company Number: MX-BAYER-2012-131308

PATIENT
  Age: 25 Year
  Sex: Female
  Weight: 80 kg

DRUGS (1)
  1. YASMIN [Suspect]
     Dosage: 3 mg, QD
     Route: 048

REACTIONS (8)
  - Urinary tract infection [Recovering/Resolving]
  - Dysuria [Recovering/Resolving]
  - Micturition urgency [Recovering/Resolving]
  - Blood urine present [Recovering/Resolving]
  - Chromaturia [None]
  - Nausea [Recovered/Resolved]
  - Asthenia [Recovered/Resolved]
  - urine was the same color than nitrofurantoin [Recovered/Resolved]
